FAERS Safety Report 6115874-6 (Version None)
Quarter: 2009Q1

REPORT INFORMATION
  Report Type: 
  Country: None (occurrence: None)
  Receive Date: 20090311
  Receipt Date: 20090226
  Transmission Date: 20090719
  Serious: No
  Sender: FDA-Public Use
  Company Number: SPI200900078

PATIENT
  Age: 30 Year
  Sex: Female
  Weight: 56.2 kg

DRUGS (2)
  1. AMITIZA [Suspect]
     Indication: CONSTIPATION
     Dosage: 24 MCG, ORAL
     Route: 048
     Dates: end: 20090201
  2. REGLAN /00041901/ (METOCLOPRAMIDE) [Concomitant]

REACTIONS (1)
  - DYSPNOEA [None]
